FAERS Safety Report 11641304 (Version 1)
Quarter: 2015Q4

REPORT INFORMATION
  Report Type: Spontaneous
  Country: GB (occurrence: GB)
  Receive Date: 20151019
  Receipt Date: 20151019
  Transmission Date: 20160304
  Serious: Yes (Other)
  Sender: FDA-Public Use
  Company Number: PHHY2015GB123670

PATIENT
  Age: 31 Year
  Sex: Male

DRUGS (3)
  1. INFLIXIMAB [Suspect]
     Active Substance: INFLIXIMAB
     Indication: COLITIS ULCERATIVE
     Route: 042
     Dates: start: 20150910
  2. PREDNISOLONE. [Suspect]
     Active Substance: PREDNISOLONE
     Indication: COLITIS ULCERATIVE
     Dosage: REDUCING DOSE. STARTING AT 30MG AND REDUCING BY 5MG EACH WEEK.
     Route: 065
     Dates: start: 20150928
  3. AZATHIOPRINE. [Suspect]
     Active Substance: AZATHIOPRINE
     Indication: COLITIS ULCERATIVE
     Dosage: 150 MG, QD
     Route: 048
     Dates: start: 20150928

REACTIONS (7)
  - Feeling hot [Unknown]
  - Pyrexia [Unknown]
  - Oropharyngeal pain [Unknown]
  - Productive cough [Unknown]
  - Nasopharyngitis [Unknown]
  - Headache [Unknown]
  - Cold sweat [Unknown]

NARRATIVE: CASE EVENT DATE: 20150929
